FAERS Safety Report 7361767-6 (Version None)
Quarter: 2011Q1

REPORT INFORMATION
  Report Type: 
  Country: None (occurrence: None)
  Receive Date: 20110318
  Receipt Date: 20110308
  Transmission Date: 20110831
  Serious: Yes (Other)
  Sender: FDA-Public Use
  Company Number: DE-MERCK-1101DEU00056

PATIENT
  Age: 3 Year
  Sex: Female

DRUGS (1)
  1. SINGULAIR [Suspect]
     Indication: INFLAMMATION
     Route: 048
     Dates: start: 20101101, end: 20110115

REACTIONS (6)
  - CRYING [None]
  - EPISTAXIS [None]
  - POOR QUALITY SLEEP [None]
  - MIDDLE EAR EFFUSION [None]
  - BLEEDING TIME PROLONGED [None]
  - SLEEP DISORDER [None]
